FAERS Safety Report 21535959 (Version 2)
Quarter: 2022Q4

REPORT INFORMATION
  Report Type: Spontaneous
  Country: CA (occurrence: CA)
  Receive Date: 20221101
  Receipt Date: 20221111
  Transmission Date: 20230113
  Serious: Yes (Other)
  Sender: FDA-Public Use
  Company Number: CA-PFIZER INC-202100918210

PATIENT
  Age: 67 Year
  Sex: Female

DRUGS (21)
  1. RUXIENCE [Suspect]
     Active Substance: RITUXIMAB-PVVR
     Indication: Rheumatoid arthritis
     Dosage: 1000 MG DAY 1 + DAY 15
     Route: 042
     Dates: start: 20210128, end: 20210211
  2. RUXIENCE [Suspect]
     Active Substance: RITUXIMAB-PVVR
     Dosage: 500 MG, DAY 1 + DAY 15
     Route: 042
     Dates: start: 20220916, end: 20221005
  3. RUXIENCE [Suspect]
     Active Substance: RITUXIMAB-PVVR
     Dosage: 1000 MG, ONE-TIME DOSE, NOT STARTED YET
     Route: 042
  4. EBASTINE [Concomitant]
     Active Substance: EBASTINE
     Dosage: 1 DF, 1X/DAY
  5. ALENDRONATE SODIUM [Concomitant]
     Active Substance: ALENDRONATE SODIUM
     Dosage: 70 MG, WEEKLY
  6. AZOPT [BRINZOLAMIDE] [Concomitant]
     Dosage: 1 DF, EYE DROPS
  7. FLOVENT [Concomitant]
     Active Substance: FLUTICASONE PROPIONATE
     Dosage: 500 UG, 2X/DAY
  8. FOLIC ACID [Concomitant]
     Active Substance: FOLIC ACID
     Dosage: 5 MG, DAILY (6 DAYS/WEEK)
  9. GLUCOSAMINE [Concomitant]
     Active Substance: GLUCOSAMINE
     Dosage: 1 DF, UNKNOWN DOSE, FREQUENCY
  10. HYDROCHLOROTHIAZIDE [Concomitant]
     Active Substance: HYDROCHLOROTHIAZIDE
     Dosage: 12.5 MG, 1X/DAY DAILY
  11. MAGNESIUM GLUCONATE [Concomitant]
     Active Substance: MAGNESIUM GLUCONATE
     Dosage: 500 MG, 3X/DAY
  12. METHOTREXATE [Concomitant]
     Active Substance: METHOTREXATE
     Dosage: 7.5 MG, WEEKLY
     Route: 042
  13. OMEGA-3 FATTY ACIDS [Concomitant]
     Active Substance: OMEGA-3 FATTY ACIDS
     Dosage: 1 DF, UNKNOWN DOSE, FREQUENCY
  14. POTASSIUM CHLORIDE [Concomitant]
     Active Substance: POTASSIUM CHLORIDE
     Dosage: 1500 MG, 1X/DAY
  15. ROCALTROL [Concomitant]
     Active Substance: CALCITRIOL
     Dosage: 0.5UG, DAILY
  16. SYNTHROID [Concomitant]
     Active Substance: LEVOTHYROXINE SODIUM
     Dosage: 100 UG, 1X/DAY
  17. LIOTHYRONINE SODIUM [Concomitant]
     Active Substance: LIOTHYRONINE SODIUM
     Dosage: 1 DF, 2X/DAY, 1 TAB BID
  18. CALCIUM CARBONATE\MAGNESIUM CARBONATE [Concomitant]
     Active Substance: CALCIUM CARBONATE\MAGNESIUM CARBONATE
     Dosage: 750 MG, 1X/DAY
  19. TYLENOL ARTHRITIS PAIN [Concomitant]
     Active Substance: ACETAMINOPHEN
     Dosage: 1 DF, 3X/DAY
  20. ALBUTEROL SULFATE [Concomitant]
     Active Substance: ALBUTEROL SULFATE
     Dosage: 200 UG, AS NEEDED BID OR PRN
  21. XALATAN [Concomitant]
     Active Substance: LATANOPROST
     Dosage: 1 DF, EYE DROPS

REACTIONS (4)
  - Foot operation [Unknown]
  - Therapeutic product effect decreased [Unknown]
  - Off label use [Unknown]
  - Off label use [Unknown]

NARRATIVE: CASE EVENT DATE: 20210630
